FAERS Safety Report 5753169-0 (Version None)
Quarter: 2008Q2

REPORT INFORMATION
  Report Type: 
  Country: None (occurrence: None)
  Receive Date: 20080527
  Receipt Date: 20080512
  Transmission Date: 20081010
  Serious: Yes (Hospitalization)
  Sender: FDA-Public Use
  Company Number: ENTC2008-0147

PATIENT
  Sex: Female

DRUGS (2)
  1. STALEVO 100 [Suspect]
     Indication: PARKINSON'S DISEASE
     Dosage: 3 TABLETS 100/25/200 MG PER DAY ORAL
     Route: 048
     Dates: start: 20070201
  2. EMATROPINA [Concomitant]

REACTIONS (3)
  - ANOREXIA [None]
  - DEPRESSION [None]
  - EPISTAXIS [None]
